FAERS Safety Report 7483726-5 (Version None)
Quarter: 2011Q2

REPORT INFORMATION
  Report Type: 
  Country: None (occurrence: None)
  Receive Date: 20110517
  Receipt Date: 20110504
  Transmission Date: 20111010
  Serious: Yes (Other)
  Sender: FDA-Public Use
  Company Number: PHHY2011US36157

PATIENT
  Age: 68 Year
  Sex: Female

DRUGS (10)
  1. BONIVA [Concomitant]
     Indication: OSTEOPOROSIS
     Route: 048
  2. LISINOPRIL [Concomitant]
     Dosage: 5 MG 2X DAY
  3. PAROXETINE HCL [Concomitant]
     Dosage: 20 MG 2 X DAY
  4. EXEMESTANE [Concomitant]
     Dosage: 25 MG, QD
  5. DILTIAZEM [Concomitant]
     Dosage: 240 MG 1X DAY
  6. ACETAMINOPHEN [Concomitant]
  7. LISINOPRIL [Concomitant]
     Dosage: 5 MG, QD
  8. CALCIUM WITH VITAMIN D [Concomitant]
  9. PROPRANOLOL [Concomitant]
     Dosage: 80 MG, QD
  10. RECLAST [Suspect]
     Indication: OSTEOPOROSIS
     Dosage: 5 MG
     Route: 042
     Dates: start: 20090101

REACTIONS (5)
  - TOOTH LOSS [None]
  - INFECTION [None]
  - OSTEONECROSIS OF JAW [None]
  - PAIN IN JAW [None]
  - BONE SWELLING [None]
